FAERS Safety Report 6604644-8 (Version None)
Quarter: 2010Q1

REPORT INFORMATION
  Report Type: 
  Country: None (occurrence: None)
  Receive Date: 20100226
  Receipt Date: 20100217
  Transmission Date: 20100710
  Serious: Yes (Hospitalization)
  Sender: FDA-Public Use
  Company Number: JP-ROCHE-675964

PATIENT
  Age: 61 Year
  Sex: Female
  Weight: 41.5 kg

DRUGS (16)
  1. TOCILIZUMAB [Suspect]
     Indication: RHEUMATOID ARTHRITIS
     Route: 041
     Dates: start: 20090420, end: 20090420
  2. TOCILIZUMAB [Suspect]
     Route: 041
     Dates: start: 20090520, end: 20090520
  3. TOCILIZUMAB [Suspect]
     Route: 041
     Dates: start: 20090617, end: 20090617
  4. TOCILIZUMAB [Suspect]
     Route: 041
     Dates: start: 20090715, end: 20090715
  5. TOCILIZUMAB [Suspect]
     Route: 041
     Dates: start: 20090810, end: 20090810
  6. TOCILIZUMAB [Suspect]
     Route: 041
     Dates: start: 20090909, end: 20090909
  7. TOCILIZUMAB [Suspect]
     Route: 041
     Dates: start: 20091007, end: 20091007
  8. TOCILIZUMAB [Suspect]
     Route: 041
     Dates: start: 20091104, end: 20091104
  9. TOCILIZUMAB [Suspect]
     Route: 041
     Dates: start: 20091202, end: 20091202
  10. RIMATIL [Concomitant]
     Route: 048
     Dates: end: 20090809
  11. RIMATIL [Concomitant]
     Route: 048
     Dates: start: 20090810, end: 20091006
  12. METHOTREXATE [Concomitant]
     Route: 048
  13. LORCAM [Concomitant]
     Route: 048
  14. MARZULENE-S [Concomitant]
     Route: 048
  15. GASTER D [Concomitant]
     Route: 048
  16. FOLIAMIN [Concomitant]
     Dosage: FORM: PERORAL AGENT.
     Route: 048

REACTIONS (6)
  - HAEMOTHORAX [None]
  - HEPATIC CYST [None]
  - HYPERCHOLESTEROLAEMIA [None]
  - PLEURAL EFFUSION [None]
  - PLEURISY [None]
  - PNEUMONIA [None]
